FAERS Safety Report 5902856-X (Version None)
Quarter: 2008Q3

REPORT INFORMATION
  Report Type: 
  Country: None (occurrence: None)
  Receive Date: 20080929
  Receipt Date: 20080929
  Transmission Date: 20090109
  Serious: Yes (Hospitalization)
  Sender: FDA-Public Use
  Company Number: None

PATIENT
  Sex: Female
  Weight: 55.1 kg

DRUGS (3)
  1. TEMOZOLOMIDE [Suspect]
     Dosage: 3255 MG
  2. COMPAZINE [Concomitant]
  3. KYTRIL [Concomitant]

REACTIONS (1)
  - LYMPHOPENIA [None]
